FAERS Safety Report 4990383-6 (Version None)
Quarter: 2006Q2

REPORT INFORMATION
  Report Type: 
  Country: None (occurrence: None)
  Receive Date: 20060427
  Receipt Date: 20060414
  Transmission Date: 20061013
  Serious: Yes (Hospitalization, Other)
  Sender: FDA-Public Use
  Company Number: HQWYE835214APR06

PATIENT
  Age: 84 Year
  Sex: Female

DRUGS (6)
  1. CORDARONE [Suspect]
     Dosage: 200 MG 1X PER 1 DAY, ORAL
     Route: 048
     Dates: start: 20000615
  2. NORSET (MITRTAZAPINE, ) [Suspect]
     Indication: SLEEP DISORDER
     Dosage: 15 MG, 1X PER 1 DAY, ORAL
     Route: 048
     Dates: start: 20051101, end: 20060307
  3. LEVOTHYROXINE SODIUM [Concomitant]
  4. NOCTRIN 10 (ACEPROMAZINE/ACEPROMETAZINE/CLORAZEPATE DIPOTASSIUM) [Concomitant]
  5. DIAFUSOR (GLYCERYL TRINTRATE) [Concomitant]
  6. KARDEGIC (ACETYLSALICYLATE LYSINE) [Concomitant]

REACTIONS (4)
  - DRUG INTERACTION [None]
  - MALAISE [None]
  - SYNCOPE [None]
  - TORSADE DE POINTES [None]
